FAERS Safety Report 10210004 (Version 1)
Quarter: 2014Q2

REPORT INFORMATION
  Report Type: Spontaneous
  Country: US (occurrence: US)
  Receive Date: 20140602
  Receipt Date: 20140602
  Transmission Date: 20141212
  Serious: Yes (Other)
  Sender: FDA-Public Use
  Company Number: US-JNJFOC-20140516809

PATIENT
  Sex: Male

DRUGS (1)
  1. RISPERDAL [Suspect]
     Indication: SCHIZOPHRENIA
     Route: 048
     Dates: start: 2000, end: 201404

REACTIONS (11)
  - Suicidal ideation [Unknown]
  - Deformity [Unknown]
  - Psychological trauma [Unknown]
  - Endocrine disorder [Unknown]
  - Fear [Unknown]
  - Emotional distress [Unknown]
  - Weight increased [Unknown]
  - Hyperprolactinaemia [Unknown]
  - Gynaecomastia [Unknown]
  - Anxiety [Unknown]
  - Sexual dysfunction [Unknown]
